FAERS Safety Report 7391180-7 (Version None)
Quarter: 2011Q2

REPORT INFORMATION
  Report Type: 
  Country: None (occurrence: None)
  Receive Date: 20110404
  Receipt Date: 20100624
  Transmission Date: 20111010
  Serious: Yes (Other)
  Sender: FDA-Public Use
  Company Number: US-PFIZER INC-2010079617

PATIENT
  Sex: Male

DRUGS (2)
  1. ZOLOFT [Suspect]
     Dosage: UNK
  2. ABILIFY [Suspect]
     Dosage: UNK

REACTIONS (3)
  - ANXIETY [None]
  - WITHDRAWAL SYNDROME [None]
  - DISTURBANCE IN ATTENTION [None]
